FAERS Safety Report 4673715-8 (Version None)
Quarter: 2005Q2

REPORT INFORMATION
  Report Type: 
  Country: None (occurrence: None)
  Receive Date: 20050523
  Receipt Date: 20050510
  Transmission Date: 20051028
  Serious: Yes (Death, Other)
  Sender: FDA-Public Use
  Company Number: 2005073394

PATIENT
  Age: 34 Year
  Sex: Male

DRUGS (3)
  1. ZIPRASIDONE HCL [Suspect]
     Indication: TOURETTE'S DISORDER
     Dosage: 90 MG (30 MG, 3 IN 1 D), UNKNOWN
     Route: 065
  2. ANALGESICS (ANALGESICS) [Concomitant]
  3. CLONAZEPAM [Concomitant]

REACTIONS (11)
  - ACUTE CORONARY SYNDROME [None]
  - BACK PAIN [None]
  - CHEST PAIN [None]
  - CORONARY ARTERY OCCLUSION [None]
  - FATIGUE [None]
  - HIGH DENSITY LIPOPROTEIN DECREASED [None]
  - PAIN [None]
  - SEDATION [None]
  - SLEEP DISORDER [None]
  - SUDDEN DEATH [None]
  - WEIGHT INCREASED [None]
